FAERS Safety Report 7819178-2 (Version None)
Quarter: 2011Q4

REPORT INFORMATION
  Report Type: 
  Country: None (occurrence: None)
  Receive Date: 20111018
  Receipt Date: 20111011
  Transmission Date: 20120403
  Serious: No
  Sender: FDA-Public Use
  Company Number: US-UCBSA-043216

PATIENT

DRUGS (1)
  1. LACOSAMIDE [Suspect]
     Dosage: UNKNOWN DOSAGE

REACTIONS (1)
  - SYNCOPE [None]
